FAERS Safety Report 16515430 (Version 1)
Quarter: 2019Q3

REPORT INFORMATION
  Report Type: Spontaneous
  Country: US (occurrence: US)
  Receive Date: 20190702
  Receipt Date: 20190702
  Transmission Date: 20191004
  Serious: No
  Sender: FDA-Public Use
  Company Number: US-GALDERMA-US19003327

PATIENT
  Age: 86 Year
  Sex: Female

DRUGS (15)
  1. HCTZ DIURETIC [Concomitant]
  2. VITAMIN A [Concomitant]
     Active Substance: VITAMIN A
  3. PROACTIV MD ADAPALENE ACNE TREATMENT [Suspect]
     Active Substance: ADAPALENE
     Indication: ACNE
     Dosage: 0.1%
     Route: 061
     Dates: start: 201809, end: 20181201
  4. METOPROLOL TARTRATE. [Concomitant]
     Active Substance: METOPROLOL TARTRATE
  5. PLAVIX [Concomitant]
     Active Substance: CLOPIDOGREL BISULFATE
  6. PROACTIV MD DEEP CLEANSING FACE WASH [Concomitant]
     Active Substance: COSMETICS
     Indication: ACNE
     Route: 061
     Dates: start: 201809, end: 20181201
  7. VITAMIN E [Concomitant]
     Active Substance: .ALPHA.-TOCOPHEROL
  8. NEXIUM [Concomitant]
     Active Substance: ESOMEPRAZOLE MAGNESIUM
  9. PROACTIV MD DAILY OIL CONTROL SPF 30 [Suspect]
     Active Substance: AVOBENZONE\OCTISALATE\OCTOCRYLENE
     Indication: ACNE
     Route: 061
     Dates: start: 201809, end: 20181201
  10. THYROXINE [Concomitant]
     Active Substance: LEVOTHYROXINE
  11. SIMVASTATIN. [Concomitant]
     Active Substance: SIMVASTATIN
  12. PROLENSA EYE DROPS EACH DAY [Concomitant]
  13. BIOTIN [Concomitant]
     Active Substance: BIOTIN
  14. CORAL CALCIUM [Concomitant]
     Active Substance: DIETARY SUPPLEMENT
  15. VITAMINS [Concomitant]
     Active Substance: VITAMINS
     Indication: STRESS

REACTIONS (2)
  - Skin exfoliation [Recovered/Resolved]
  - Lacrimation increased [Recovered/Resolved]

NARRATIVE: CASE EVENT DATE: 201810
